FAERS Safety Report 15548495 (Version 2)
Quarter: 2018Q4

REPORT INFORMATION
  Report Type: Report from Study
  Country: None (occurrence: DE)
  Receive Date: 20181025
  Receipt Date: 20181127
  Transmission Date: 20190205
  Serious: No
  Sender: FDA-Public Use
  Company Number: DE-ABBVIE-18S-062-2523171-00

PATIENT
  Sex: Female

DRUGS (2)
  1. MADOPAR DEPOT [Concomitant]
     Active Substance: BENSERAZIDE HYDROCHLORIDE\LEVODOPA
     Indication: PRODUCT USED FOR UNKNOWN INDICATION
  2. DUODOPA [Suspect]
     Active Substance: CARBIDOPA\LEVODOPA
     Indication: PARKINSON^S DISEASE
     Dosage: MD 5 ML; CRD 1.5 ML/ H; ED 1.2 ML
     Route: 050
     Dates: start: 20171030, end: 20181015

REACTIONS (2)
  - On and off phenomenon [Unknown]
  - Drug ineffective [Unknown]
